FAERS Safety Report 7235368-4 (Version None)
Quarter: 2011Q1

REPORT INFORMATION
  Report Type: 
  Country: None (occurrence: None)
  Receive Date: 20110120
  Receipt Date: 20110117
  Transmission Date: 20110831
  Serious: Yes (Hospitalization, Other)
  Sender: FDA-Public Use
  Company Number: JP-PFIZER INC-2010170864

PATIENT
  Age: 60 Year
  Sex: Female

DRUGS (2)
  1. ZITHROMAC SR [Suspect]
     Indication: NASOPHARYNGITIS
     Dosage: 2 G, DAILY
     Route: 048
     Dates: start: 20101201, end: 20101201
  2. LOXONIN [Concomitant]
     Dosage: 60 MG, DAILY
     Route: 048
     Dates: start: 20101101

REACTIONS (2)
  - PNEUMONIA [None]
  - GRANULOCYTOPENIA [None]
